FAERS Safety Report 5954881-0 (Version None)
Quarter: 2008Q4

REPORT INFORMATION
  Report Type: 
  Country: None (occurrence: None)
  Receive Date: 20081117
  Receipt Date: 20081104
  Transmission Date: 20090506
  Serious: Yes (Hospitalization, Other)
  Sender: FDA-Public Use
  Company Number: CN-NOVOPROD-280173

PATIENT
  Age: 66 Year
  Sex: Female
  Weight: 55 kg

DRUGS (5)
  1. NOVOLIN R [Suspect]
     Indication: KETOACIDOSIS
     Dosage: 6 IU, QD
     Dates: start: 20080916, end: 20080919
  2. NOVOLIN R [Suspect]
     Dates: start: 20080919
  3. NOVOLIN R [Suspect]
     Indication: DIABETES MELLITUS
  4. NOVOLIN N [Concomitant]
     Dates: start: 20080919
  5. CEFTRIAXONE [Concomitant]
     Dosage: 4 G, QD
     Route: 042
     Dates: start: 20080916, end: 20080929

REACTIONS (6)
  - BLOOD GLUCOSE ABNORMAL [None]
  - CHILLS [None]
  - KETOACIDOSIS [None]
  - PYREXIA [None]
  - RASH GENERALISED [None]
  - URINARY TRACT INFECTION [None]
